FAERS Safety Report 18234446 (Version 2)
Quarter: 2020Q3

REPORT INFORMATION
  Report Type: Report from Study
  Country: AR (occurrence: AR)
  Receive Date: 20200904
  Receipt Date: 20200918
  Transmission Date: 20201103
  Serious: Yes (Death)
  Sender: FDA-Public Use
  Company Number: AR-SEATTLE GENETICS-2020SGN03963

PATIENT
  Age: 60 Year
  Sex: Male

DRUGS (1)
  1. BRENTUXIMAB VEDOTIN?MPI [Suspect]
     Active Substance: BRENTUXIMAB VEDOTIN
     Indication: HODGKIN^S DISEASE REFRACTORY
     Dosage: UNK UNK, Q3WEEKS
     Route: 042
     Dates: start: 20200305

REACTIONS (4)
  - General physical health deterioration [Fatal]
  - Pyrexia [Fatal]
  - Diarrhoea [Fatal]
  - Device related infection [Fatal]

NARRATIVE: CASE EVENT DATE: 20200710
